FAERS Safety Report 8255040-1 (Version None)
Quarter: 2012Q1

REPORT INFORMATION
  Report Type: 
  Country: None (occurrence: None)
  Receive Date: 20120329
  Receipt Date: 20120314
  Transmission Date: 20120608
  Serious: Yes (Hospitalization)
  Sender: FDA-Public Use
  Company Number: 2012SGN00122

PATIENT
  Age: 43 Year
  Sex: Female

DRUGS (1)
  1. ADCETRIS [Suspect]
     Indication: HODGKIN'S DISEASE
     Dosage: 1.8 MG/KG, Q21D, INTRAVENOUS
     Route: 042
     Dates: start: 20111101, end: 20120201

REACTIONS (4)
  - PNEUMONIA NECROTISING [None]
  - ACTINOMYCES TEST POSITIVE [None]
  - BACTERIAL SEPSIS [None]
  - PNEUMONIA [None]
